FAERS Safety Report 22267344 (Version 1)
Quarter: 2023Q2

REPORT INFORMATION
  Report Type: Spontaneous
  Country: CN (occurrence: None)
  Receive Date: 20230428
  Receipt Date: 20230428
  Transmission Date: 20230722
  Serious: Yes (Death)
  Sender: FDA-Public Use
  Company Number: 2023A099387

PATIENT
  Age: 61 Year
  Sex: Male
  Weight: 55 kg

DRUGS (1)
  1. IMFINZI [Suspect]
     Active Substance: DURVALUMAB
     Indication: Non-small cell lung cancer stage III
     Dosage: 500.0MG EVERY CYCLE
     Route: 042
     Dates: start: 20220317, end: 20220407

REACTIONS (1)
  - Death [Fatal]
